FAERS Safety Report 6696939-7 (Version None)
Quarter: 2010Q2

REPORT INFORMATION
  Report Type: 
  Country: None (occurrence: None)
  Receive Date: 20100426
  Receipt Date: 20100416
  Transmission Date: 20101027
  Serious: Yes (Other)
  Sender: FDA-Public Use
  Company Number: PHHY2010CA24355

PATIENT
  Sex: Female

DRUGS (1)
  1. FEMARA [Suspect]
     Indication: BREAST CANCER
     Dosage: 2.5 MG DAILY
     Route: 048
     Dates: start: 20100218

REACTIONS (10)
  - BLOOD GLUCOSE INCREASED [None]
  - DIZZINESS [None]
  - EAR INFECTION [None]
  - EPISTAXIS [None]
  - FEELING ABNORMAL [None]
  - HAEMOPTYSIS [None]
  - HEADACHE [None]
  - MALAISE [None]
  - RASH [None]
  - THYROID DISORDER [None]
